FAERS Safety Report 4545860-9 (Version None)
Quarter: 2005Q1

REPORT INFORMATION
  Report Type: 
  Country: None (occurrence: None)
  Receive Date: 20050105
  Receipt Date: 20050105
  Transmission Date: 20050727
  Serious: No
  Sender: FDA-Public Use
  Company Number: None

PATIENT
  Age: 84 Year
  Sex: Female
  Weight: 60.9 kg

DRUGS (1)
  1. TAXOL [Suspect]
     Dosage: PACLITAXEL - ELUTING CORONARY STENT
     Dates: start: 20050103

REACTIONS (2)
  - MEDICAL DEVICE COMPLICATION [None]
  - PHARMACEUTICAL PRODUCT COMPLAINT [None]
